APPROVED DRUG PRODUCT: ROMIDEPSIN
Active Ingredient: ROMIDEPSIN
Strength: 10MG/VIAL
Dosage Form/Route: POWDER;INTRAVENOUS
Application: A206254 | Product #001 | TE Code: AP
Applicant: FRESENIUS KABI USA LLC
Approved: Oct 12, 2021 | RLD: No | RS: No | Type: RX